FAERS Safety Report 4504242-6 (Version None)
Quarter: 2004Q4

REPORT INFORMATION
  Report Type: 
  Country: None (occurrence: None)
  Receive Date: 20041116
  Receipt Date: 20041102
  Transmission Date: 20050328
  Serious: Yes (Death)
  Sender: FDA-Public Use
  Company Number: 2004S1003273

PATIENT
  Age: 58 Year
  Sex: Male

DRUGS (4)
  1. CLOZAPINE [Suspect]
     Indication: SCHIZOPHRENIA, PARANOID TYPE
     Dosage: 375 MG QD ORAL
     Route: 048
     Dates: start: 20020301, end: 20041020
  2. CLOZAPINE [Suspect]
     Dosage: 375MG QD ORAL
     Route: 048
     Dates: start: 20020301, end: 20041020
  3. DIVALPROEX SODIUM [Concomitant]
  4. BENZTROPINE MESYLATE [Concomitant]

REACTIONS (1)
  - ACUTE MYOCARDIAL INFARCTION [None]
